FAERS Safety Report 8388962-1 (Version None)
Quarter: 2012Q2

REPORT INFORMATION
  Report Type: 
  Country: None (occurrence: None)
  Receive Date: 20120528
  Receipt Date: 20120517
  Transmission Date: 20120825
  Serious: Yes (Hospitalization)
  Sender: FDA-Public Use
  Company Number: CN-BRISTOL-MYERS SQUIBB COMPANY-16360919

PATIENT
  Age: 38 Year
  Sex: Female
  Weight: 48 kg

DRUGS (6)
  1. CISPLATIN [Suspect]
     Indication: NON-SMALL CELL LUNG CANCER STAGE III
     Dosage: DOSAGE-ON DAYS ONE TO EIGHT
     Route: 065
     Dates: start: 20100920, end: 20101025
  2. FOLIC ACID [Concomitant]
     Indication: PROPHYLAXIS
  3. DEXAMETHASONE [Concomitant]
     Indication: DEHYDRATION
     Dates: start: 20101015, end: 20101028
  4. ETOPOSIDE [Suspect]
     Indication: NON-SMALL CELL LUNG CANCER STAGE III
     Dosage: DOSAGE-ON DAYS ONE TO FIVE
     Route: 065
     Dates: start: 20100920, end: 20101022
  5. VITAMIN B-12 [Concomitant]
     Indication: PROPHYLAXIS
  6. TROPISETRON [Concomitant]
     Indication: ANTIEMETIC SUPPORTIVE CARE
     Dates: start: 20101019

REACTIONS (1)
  - SUPERIOR VENA CAVA SYNDROME [None]
